FAERS Safety Report 5202520-9 (Version None)
Quarter: 2006Q4

REPORT INFORMATION
  Report Type: 
  Country: None (occurrence: None)
  Receive Date: 20061017
  Receipt Date: 20060908
  Transmission Date: 20070319
  Serious: Yes (Hospitalization)
  Sender: FDA-Public Use
  Company Number: US-JNJFOC-20060307730

PATIENT
  Age: 84 Year
  Sex: Male

DRUGS (1)
  1. RAZADYNE ER [Suspect]
     Indication: DEMENTIA ALZHEIMER'S TYPE
     Dosage: 1 IN 1 DAY, ORAL
     Route: 048
     Dates: start: 20060324, end: 20060325

REACTIONS (2)
  - CEREBROVASCULAR ACCIDENT [None]
  - DYSKINESIA [None]
